FAERS Safety Report 17492465 (Version 1)
Quarter: 2020Q1

REPORT INFORMATION
  Report Type: Spontaneous
  Country: CA (occurrence: CA)
  Receive Date: 20200304
  Receipt Date: 20200304
  Transmission Date: 20200409
  Serious: Yes (Life-Threatening, Hospitalization, Other)
  Sender: FDA-Public Use
  Company Number: CA-TEVA-2020-CA-1192008

PATIENT
  Age: 39 Year
  Sex: Female
  Weight: 79 kg

DRUGS (20)
  1. AA-CLOZAPINE [Suspect]
     Active Substance: CLOZAPINE
     Route: 065
  2. DIPHENHYDRAMINE HYDROCHLORIDE. [Concomitant]
     Active Substance: DIPHENHYDRAMINE HYDROCHLORIDE
     Indication: EXTRAPYRAMIDAL DISORDER
     Route: 048
  3. CLONAZEPAM. [Concomitant]
     Active Substance: CLONAZEPAM
     Indication: AGITATION
  4. OLANZAPINE. [Suspect]
     Active Substance: OLANZAPINE
     Indication: AGITATION
     Dosage: 10 MILLIGRAM DAILY;
     Route: 048
  5. AA-CLOZAPINE [Suspect]
     Active Substance: CLOZAPINE
     Route: 065
  6. AA-CLOZAPINE [Suspect]
     Active Substance: CLOZAPINE
     Dosage: 25 MILLIGRAM DAILY;
     Route: 048
  7. LORAZEPAM. [Concomitant]
     Active Substance: LORAZEPAM
     Indication: ANXIETY
     Route: 065
  8. AA-CLOZAPINE [Suspect]
     Active Substance: CLOZAPINE
     Route: 048
  9. AA-CLOZAPINE [Suspect]
     Active Substance: CLOZAPINE
     Route: 048
  10. AA-CLOZAPINE [Suspect]
     Active Substance: CLOZAPINE
     Route: 048
  11. LORAZEPAM. [Concomitant]
     Active Substance: LORAZEPAM
     Indication: AGITATION
     Route: 065
  12. MEDROXYPROGESTERONE ACETATE. [Concomitant]
     Active Substance: MEDROXYPROGESTERONE ACETATE
     Indication: CONTRACEPTION
     Route: 030
  13. AA-CLOZAPINE [Suspect]
     Active Substance: CLOZAPINE
     Route: 048
  14. MACROBID [Suspect]
     Active Substance: NITROFURANTOIN\NITROFURANTOIN MONOHYDRATE
     Indication: URINARY TRACT INFECTION
     Dosage: 200 MILLIGRAM DAILY;
     Route: 048
  15. CLONAZEPAM. [Concomitant]
     Active Substance: CLONAZEPAM
     Indication: ANXIETY
     Dosage: 2 MILLIGRAM DAILY;
     Route: 048
  16. BENZTROPINE. [Concomitant]
     Active Substance: BENZTROPINE
     Indication: EXTRAPYRAMIDAL DISORDER
     Dosage: 4 MILLIGRAM DAILY;
     Route: 048
  17. HALOPERIDOL. [Concomitant]
     Active Substance: HALOPERIDOL
     Indication: AGITATION
     Dosage: 5 MILLIGRAM DAILY;
     Route: 030
  18. AA-CLOZAPINE [Suspect]
     Active Substance: CLOZAPINE
     Indication: PSYCHOTIC DISORDER
     Dosage: 100 MILLIGRAM DAILY;
     Route: 048
  19. AA-CLOZAPINE [Suspect]
     Active Substance: CLOZAPINE
     Route: 048
  20. PALIPERIDONE. [Concomitant]
     Active Substance: PALIPERIDONE
     Indication: SCHIZOAFFECTIVE DISORDER
     Route: 030

REACTIONS (4)
  - Febrile neutropenia [Unknown]
  - Agranulocytosis [Unknown]
  - Orthostatic hypotension [Unknown]
  - Tachycardia [Unknown]
